FAERS Safety Report 10170795 (Version 1)
Quarter: 2014Q2

REPORT INFORMATION
  Report Type: Spontaneous
  Country: US (occurrence: US)
  Receive Date: 20140514
  Receipt Date: 20140514
  Transmission Date: 20141212
  Serious: Yes (Other)
  Sender: FDA-Public Use
  Company Number: US-PFIZER INC-2014129925

PATIENT
  Age: 48 Year
  Sex: Female

DRUGS (1)
  1. INLYTA [Suspect]
     Indication: RENAL NEOPLASM
     Dosage: 5 MG, 2X/DAY
     Route: 048
     Dates: start: 20140415

REACTIONS (4)
  - Nausea [Unknown]
  - Diarrhoea [Unknown]
  - Oropharyngeal pain [Unknown]
  - Mouth ulceration [Unknown]
